FAERS Safety Report 24394518 (Version 1)
Quarter: 2024Q4

REPORT INFORMATION
  Report Type: Spontaneous
  Country: GB (occurrence: GB)
  Receive Date: 20241004
  Receipt Date: 20241004
  Transmission Date: 20250115
  Serious: Yes (Other)
  Sender: NOVO NORDISK
  Company Number: GB-MHRA-EMIS-4465-9442b0c6-06f5-4401-a8e7-faefdcd674e7

PATIENT
  Age: 75 Year
  Sex: Male
  Weight: 82 kg

DRUGS (12)
  1. RYBELSUS [Suspect]
     Active Substance: SEMAGLUTIDE
     Indication: Product used for unknown indication
     Dosage: 3 MG, QD
     Dates: start: 20240612, end: 20240903
  2. RYBELSUS [Suspect]
     Active Substance: SEMAGLUTIDE
     Dosage: 7 MG, QD
     Dates: start: 20240710, end: 20240903
  3. METFORMIN [Concomitant]
     Active Substance: METFORMIN HYDROCHLORIDE
     Indication: Product used for unknown indication
     Dosage: TWO TO BE TAKEN ONCE A DAY WITH EVENING MEAL
     Dates: start: 20240612, end: 20240710
  4. URGOTUL [Concomitant]
     Indication: Product used for unknown indication
     Dosage: MDU 10CM X 10CM AS NEEDED
     Dates: start: 20240717, end: 20240904
  5. URGOTUL [Concomitant]
     Dosage: MDU 13CM X 13CM AS NEEDED
     Dates: start: 20240723, end: 20240904
  6. SODIUM CHLORIDE [Concomitant]
     Active Substance: SODIUM CHLORIDE
     Indication: Product used for unknown indication
     Dosage: UNK (MDU)
     Dates: start: 20240717, end: 20240829
  7. DERMACOOL [Concomitant]
     Indication: Product used for unknown indication
     Dosage: 100 G
     Dates: start: 20240801
  8. MINERAL OIL\PARAFFIN [Concomitant]
     Active Substance: MINERAL OIL\PARAFFIN
     Indication: Product used for unknown indication
     Dosage: 500 G
     Dates: start: 20240801
  9. POVIDONE-IODINE [Concomitant]
     Active Substance: POVIDONE-IODINE
     Indication: Product used for unknown indication
     Dosage: UNK
     Dates: start: 20240903
  10. SITAGLIPTIN [Concomitant]
     Active Substance: SITAGLIPTIN
     Indication: Product used for unknown indication
     Dosage: UNK, ONCE DAILY
     Dates: start: 20240903
  11. FLUCLOXACILLIN [Concomitant]
     Active Substance: FLUCLOXACILLIN
     Indication: Product used for unknown indication
     Dosage: ONE TO BE TAKEN FOUR TIMES A DAY
     Dates: start: 20240903
  12. FUSIDIC ACID [Concomitant]
     Active Substance: FUSIDIC ACID
     Indication: Product used for unknown indication
     Dosage: 30 G, TID
     Dates: start: 20240903

REACTIONS (1)
  - Skin lesion [Recovering/Resolving]

NARRATIVE: CASE EVENT DATE: 20240827
